FAERS Safety Report 7340732-9 (Version None)
Quarter: 2011Q1

REPORT INFORMATION
  Report Type: 
  Country: None (occurrence: None)
  Receive Date: 20110309
  Receipt Date: 20110304
  Transmission Date: 20110831
  Serious: Yes (Life-Threatening, Hospitalization)
  Sender: FDA-Public Use
  Company Number: FR-ROCHE-763514

PATIENT
  Sex: Female
  Weight: 72.5 kg

DRUGS (10)
  1. ROACTEMRA [Suspect]
     Route: 042
     Dates: start: 20100705
  2. CORTANCYL [Concomitant]
     Indication: RHEUMATOID ARTHRITIS
     Route: 048
     Dates: start: 20101018
  3. PARACETAMOL [Concomitant]
     Indication: RHEUMATOID ARTHRITIS
     Route: 048
     Dates: start: 20090101
  4. ROACTEMRA [Suspect]
     Route: 042
     Dates: start: 20100802
  5. PLAQUENIL [Concomitant]
     Indication: RHEUMATOID ARTHRITIS
     Route: 048
     Dates: start: 20070101
  6. LAMALINE [Concomitant]
     Indication: RHEUMATOID ARTHRITIS
     Route: 048
     Dates: start: 20090101
  7. ROACTEMRA [Suspect]
     Route: 042
     Dates: start: 20100830
  8. ROACTEMRA [Suspect]
     Route: 042
     Dates: start: 20100927
  9. PREVISCAN [Concomitant]
     Indication: PHLEBITIS
     Dosage: FREQUENCY: 3/4 TABLETS DAILY.
     Route: 048
     Dates: start: 20101123
  10. ROACTEMRA [Suspect]
     Indication: RHEUMATOID ARTHRITIS
     Dosage: FORM:INFUSION, TOTAL DOSE: 580 MG
     Route: 042
     Dates: start: 20090212

REACTIONS (1)
  - HAEMORRHAGIC STROKE [None]
